FAERS Safety Report 9035260 (Version 1)
Quarter: 2013Q1

REPORT INFORMATION
  Report Type: Report from Study
  Country: US (occurrence: US)
  Receive Date: 20130129
  Receipt Date: 20130129
  Transmission Date: 20140127
  Serious: Yes (Other)
  Sender: FDA-Public Use
  Company Number: US-ABBOTT-12P-163-0895316-00

PATIENT
  Age: 52 Year
  Sex: Female

DRUGS (14)
  1. HUMIRA 40 MG/0.8 ML PEN [Suspect]
     Indication: RHEUMATOID ARTHRITIS
     Dates: start: 2004
  2. METHOTREXATE [Suspect]
     Indication: RHEUMATOID ARTHRITIS
  3. PLAQUINIL [Concomitant]
     Indication: RHEUMATOID ARTHRITIS
  4. ARTHROTEC [Concomitant]
     Indication: RHEUMATOID ARTHRITIS
  5. EFFEXOR [Concomitant]
     Indication: NEURITIS
  6. BUMEX [Concomitant]
     Indication: FLUID RETENTION
  7. K-DUR [Concomitant]
     Indication: MINERAL SUPPLEMENTATION
  8. FOLIC ACID [Concomitant]
     Indication: VITAMIN SUPPLEMENTATION
  9. AMBIEN [Concomitant]
     Indication: INSOMNIA
  10. NEURONTIN [Concomitant]
     Indication: PAIN
     Dosage: AT BEDTIME
  11. LEVACOR [Concomitant]
     Indication: PRODUCT USED FOR UNKNOWN INDICATION
  12. DETROL [Concomitant]
     Indication: PRODUCT USED FOR UNKNOWN INDICATION
     Dosage: 4MG DAILY
  13. B12 [Concomitant]
     Indication: PRODUCT USED FOR UNKNOWN INDICATION
  14. PERCOCET [Concomitant]
     Indication: PAIN

REACTIONS (10)
  - Musculoskeletal pain [Recovering/Resolving]
  - Sinusitis [Not Recovered/Not Resolved]
  - Hypersensitivity [Not Recovered/Not Resolved]
  - Fall [Recovered/Resolved]
  - Tendon rupture [Unknown]
  - Muscle rupture [Unknown]
  - Glucose tolerance impaired [Not Recovered/Not Resolved]
  - Thyroid disorder [Not Recovered/Not Resolved]
  - Drug dose omission [Unknown]
  - Product quality issue [Unknown]
